FAERS Safety Report 6455275-4 (Version None)
Quarter: 2009Q4

REPORT INFORMATION
  Report Type: 
  Country: None (occurrence: None)
  Receive Date: 20091119
  Receipt Date: 20080806
  Transmission Date: 20100525
  Serious: Yes (Life-Threatening, Hospitalization)
  Sender: FDA-Public Use
  Company Number: 2009AL007237

PATIENT
  Age: 94 Year
  Sex: Female

DRUGS (6)
  1. SULFATRIM PEDIATRIC [Suspect]
     Indication: URINARY TRACT INFECTION
     Dosage: 960 MG; BID; PO
     Route: 048
     Dates: start: 20080630, end: 20080705
  2. PARACETAMOL [Concomitant]
  3. FUROSEMIDE [Concomitant]
  4. NULYTELY [Concomitant]
  5. AMOXICILLIN [Concomitant]
  6. TRIMETHOPRIM [Concomitant]

REACTIONS (4)
  - CONFUSIONAL STATE [None]
  - HAEMORRHAGE [None]
  - MOBILITY DECREASED [None]
  - PLATELET COUNT DECREASED [None]
